FAERS Safety Report 13906096 (Version 1)
Quarter: 2017Q3

REPORT INFORMATION
  Report Type: Spontaneous
  Country: US (occurrence: None)
  Receive Date: 20170822
  Receipt Date: 20170822
  Transmission Date: 20171127
  Serious: Yes (Hospitalization)
  Sender: FDA-Public Use
  Company Number: None

PATIENT
  Age: 3 Year
  Sex: Male
  Weight: 21.1 kg

DRUGS (34)
  1. AMIKACIN [Concomitant]
     Active Substance: AMIKACIN
  2. POTASSIUM CHLORIDE. [Concomitant]
     Active Substance: POTASSIUM CHLORIDE
  3. RANITIDINE. [Concomitant]
     Active Substance: RANITIDINE
  4. DIPHENHYDRAMINE. [Concomitant]
     Active Substance: DIPHENHYDRAMINE
  5. HYDROMORPHONE [Concomitant]
     Active Substance: HYDROMORPHONE
  6. METHYLNALTREXONE [Concomitant]
     Active Substance: METHYLNALTREXONE
  7. ALLOPURINOL. [Concomitant]
     Active Substance: ALLOPURINOL
  8. FLUCONAZOLE. [Concomitant]
     Active Substance: FLUCONAZOLE
  9. VANCOMYCIN [Concomitant]
     Active Substance: VANCOMYCIN
  10. VORICONAZOLE. [Concomitant]
     Active Substance: VORICONAZOLE
  11. POLYETHYLENE GLYCOL 3350. [Concomitant]
     Active Substance: POLYETHYLENE GLYCOL 3350
  12. ACETAMINOPHEN. [Concomitant]
     Active Substance: ACETAMINOPHEN
  13. CEFEPIME [Concomitant]
     Active Substance: CEFEPIME HYDROCHLORIDE
  14. FUROSEMIDE. [Concomitant]
     Active Substance: FUROSEMIDE
  15. METRONIDAZOLE. [Concomitant]
     Active Substance: METRONIDAZOLE
  16. MORPHINE [Concomitant]
     Active Substance: MORPHINE
  17. ONDANSETRON [Concomitant]
     Active Substance: ONDANSETRON
  18. ONCASPAR [Suspect]
     Active Substance: PEGASPARGASE
     Dates: end: 20170722
  19. CYTARABINE. [Suspect]
     Active Substance: CYTARABINE
     Dates: end: 20170717
  20. HYDROCORTISONE. [Concomitant]
     Active Substance: HYDROCORTISONE
  21. LACTULOSE. [Concomitant]
     Active Substance: LACTULOSE
  22. LEVOFLOXACIN. [Concomitant]
     Active Substance: LEVOFLOXACIN
  23. URSODIOL. [Concomitant]
     Active Substance: URSODIOL
  24. AMPHOTERICIN B LIPOSOMAL [Concomitant]
     Active Substance: AMPHOTERICIN B
  25. MEROPENEM. [Concomitant]
     Active Substance: MEROPENEM
  26. LORAZEPAM. [Concomitant]
     Active Substance: LORAZEPAM
  27. PANTOPRAZOLE [Concomitant]
     Active Substance: PANTOPRAZOLE
  28. VINCRISTINE SULFATE. [Suspect]
     Active Substance: VINCRISTINE SULFATE
     Dates: end: 20170726
  29. DEXAMETHASONE. [Suspect]
     Active Substance: DEXAMETHASONE
     Dates: end: 20170810
  30. DIATRIZOATE [Concomitant]
     Active Substance: DIATRIZOATE MEGLUMINE
  31. DIAZEPAM. [Concomitant]
     Active Substance: DIAZEPAM
  32. MICAFUNGIN [Concomitant]
     Active Substance: MICAFUNGIN
  33. PIPERACILLIN AND TAZOBACTAM [Concomitant]
     Active Substance: PIPERACILLIN SODIUM\TAZOBACTAM SODIUM
  34. SULFAMETHOXAZOLE-TRIMETHOPRIM [Concomitant]
     Active Substance: SULFAMETHOXAZOLE\TRIMETHOPRIM

REACTIONS (10)
  - Vomiting [None]
  - Abdominal pain [None]
  - Nausea [None]
  - Ileus [None]
  - Gastrointestinal necrosis [None]
  - Ileal perforation [None]
  - Pyrexia [None]
  - Small intestinal obstruction [None]
  - Clostridium difficile colitis [None]
  - Aspergillus infection [None]

NARRATIVE: CASE EVENT DATE: 20170815
